FAERS Safety Report 20378025 (Version 1)
Quarter: 2022Q1

REPORT INFORMATION
  Report Type: Spontaneous
  Country: US (occurrence: US)
  Receive Date: 20220126
  Receipt Date: 20220126
  Transmission Date: 20220423
  Serious: No
  Sender: FDA-Public Use
  Company Number: US-ALLERGAN-2140276US

PATIENT
  Age: 71 Year
  Sex: Female

DRUGS (3)
  1. UBRELVY [Suspect]
     Active Substance: UBROGEPANT
     Indication: Migraine
     Dosage: 100 MG, PRN
     Route: 048
     Dates: start: 20211113
  2. ATENOLOL [Concomitant]
     Active Substance: ATENOLOL
  3. TOPAMAX [Concomitant]
     Active Substance: TOPIRAMATE
     Indication: Migraine

REACTIONS (4)
  - Neck pain [Recovered/Resolved]
  - Migraine [Recovered/Resolved]
  - Somnolence [Recovered/Resolved]
  - Therapeutic response delayed [Unknown]

NARRATIVE: CASE EVENT DATE: 20211123
